FAERS Safety Report 4566461-2 (Version None)
Quarter: 2005Q1

REPORT INFORMATION
  Report Type: 
  Country: None (occurrence: None)
  Receive Date: 20050126
  Receipt Date: 20050126
  Transmission Date: 20050727
  Serious: Yes (Other)
  Sender: FDA-Public Use
  Company Number: None

PATIENT
  Age: 35 Year
  Sex: Male
  Weight: 117.9 kg

DRUGS (2)
  1. FOSINOPRIL [Suspect]
  2. OMEPRAZOLE [Concomitant]

REACTIONS (1)
  - HEADACHE [None]
